FAERS Safety Report 19673756 (Version 1)
Quarter: 2021Q3

REPORT INFORMATION
  Report Type: Spontaneous
  Country: US (occurrence: US)
  Receive Date: 20210809
  Receipt Date: 20210809
  Transmission Date: 20211014
  Serious: Yes (Other)
  Sender: FDA-Public Use
  Company Number: US-ACCORD-170511

PATIENT
  Age: 52 Year
  Sex: Female
  Weight: 75.3 kg

DRUGS (5)
  1. DOCETAXEL ACCORD [Suspect]
     Active Substance: DOCETAXEL
     Indication: BREAST CANCER
     Dosage: 20 MG/ML, MULTIPLE DOSE VIAL
     Dates: start: 20171012, end: 20180108
  2. LEVOTHYROXINE. [Concomitant]
     Active Substance: LEVOTHYROXINE
     Dates: start: 20111225
  3. DIHYDROCODEINE/PARACETAMOL [Concomitant]
     Active Substance: ACETAMINOPHEN\DIHYDROCODEINE BITARTRATE
     Dates: start: 20171001, end: 20181031
  4. ANASTROZOLE. [Concomitant]
     Active Substance: ANASTROZOLE
     Dates: start: 20180630, end: 20180930
  5. ACICLOVIR [Concomitant]
     Active Substance: ACYCLOVIR
     Dates: start: 20171012, end: 20180301

REACTIONS (1)
  - Alopecia [Not Recovered/Not Resolved]

NARRATIVE: CASE EVENT DATE: 20180708
